FAERS Safety Report 16523010 (Version 3)
Quarter: 2019Q3

REPORT INFORMATION
  Report Type: Report from Study
  Country: GT (occurrence: GT)
  Receive Date: 20190703
  Receipt Date: 20190731
  Transmission Date: 20191004
  Serious: Yes (Hospitalization)
  Sender: FDA-Public Use
  Company Number: PHHY2019GT151677

PATIENT
  Age: 74 Year
  Sex: Male
  Weight: 63.49 kg

DRUGS (3)
  1. INSULIN [Concomitant]
     Active Substance: INSULIN NOS
     Indication: PRODUCT USED FOR UNKNOWN INDICATION
     Route: 065
  2. ATACAND [Concomitant]
     Active Substance: CANDESARTAN CILEXETIL
     Indication: HYPERTENSION
     Route: 065
  3. VYMADA [Suspect]
     Active Substance: SACUBITRIL\VALSARTAN
     Indication: CARDIAC FAILURE
     Dosage: 50 MG, BID
     Route: 065
     Dates: start: 201902

REACTIONS (6)
  - Decreased activity [Unknown]
  - Ejection fraction decreased [Unknown]
  - Fluid retention [Recovering/Resolving]
  - Cardiac disorder [Unknown]
  - Swelling [Recovering/Resolving]
  - Feeling abnormal [Unknown]
